FAERS Safety Report 8321638-5 (Version None)
Quarter: 2012Q2

REPORT INFORMATION
  Report Type: 
  Country: None (occurrence: None)
  Receive Date: 20120430
  Receipt Date: 20091029
  Transmission Date: 20120825
  Serious: No
  Sender: FDA-Public Use
  Company Number: US-TEVA-2009011905

PATIENT
  Sex: Male

DRUGS (2)
  1. NUVIGIL [Suspect]
     Route: 048
     Dates: start: 20091008, end: 20091001
  2. NUVIGIL [Suspect]
     Route: 048
     Dates: start: 20090924, end: 20091008

REACTIONS (2)
  - STOMATITIS [None]
  - DYSGEUSIA [None]
